FAERS Safety Report 8054252-X (Version None)
Quarter: 2012Q1

REPORT INFORMATION
  Report Type: 
  Country: None (occurrence: None)
  Receive Date: 20120118
  Receipt Date: 20110512
  Transmission Date: 20120608
  Serious: No
  Sender: FDA-Public Use
  Company Number: CHPA2011ZA06646

PATIENT
  Sex: Male
  Weight: 100 kg

DRUGS (1)
  1. LAMISIL [Suspect]
     Indication: FUNGAL INFECTION
     Dosage: 1 DF, Q4H
     Route: 061
     Dates: start: 20110501, end: 20110511

REACTIONS (1)
  - DRUG INEFFECTIVE [None]
